FAERS Safety Report 8174352 (Version 3)
Quarter: 2014Q1

REPORT INFORMATION
  Report Type: Spontaneous
  Country: US (occurrence: US)
  Receive Date: 20111010
  Receipt Date: 20140123
  Transmission Date: 20141002
  Serious: Yes (Hospitalization)
  Sender: FDA-Public Use
  Company Number: US-GLAXOSMITHKLINE-B0753803A

PATIENT
  Age: 41 Year
  Sex: Female

DRUGS (1)
  1. AVANDAMET [Suspect]
     Indication: DIABETES MELLITUS
     Route: 048
     Dates: start: 2004, end: 20041216

REACTIONS (5)
  - Myocardial infarction [Not Recovered/Not Resolved]
  - Angina pectoris [Unknown]
  - Palpitations [Unknown]
  - Dyspnoea [Unknown]
  - Cardiac disorder [Unknown]
